FAERS Safety Report 10059509 (Version 2)
Quarter: 2014Q2

REPORT INFORMATION
  Report Type: Spontaneous
  Country: US (occurrence: US)
  Receive Date: 20140404
  Receipt Date: 20140408
  Transmission Date: 20141212
  Serious: Yes (Other)
  Sender: FDA-Public Use
  Company Number: US-PFIZER INC-2014095329

PATIENT
  Age: 76 Year
  Sex: Male
  Weight: 55.33 kg

DRUGS (2)
  1. ELIQUIS [Suspect]
     Indication: ATRIAL FIBRILLATION
     Dosage: 5 MG, 2X/DAY (STARTED 07MAR14)
     Dates: start: 20140207
  2. AMIODARONE HCL [Suspect]
     Dosage: 400 MG, (300 MG FROM APR)

REACTIONS (4)
  - Cardioversion [Unknown]
  - Drug dose omission [Unknown]
  - Weight decreased [Unknown]
  - Diarrhoea [Unknown]
